FAERS Safety Report 17589027 (Version 1)
Quarter: 2020Q1

REPORT INFORMATION
  Report Type: Spontaneous
  Country: GB (occurrence: GB)
  Receive Date: 20200327
  Receipt Date: 20200327
  Transmission Date: 20200409
  Serious: Yes (Life-Threatening)
  Sender: FDA-Public Use
  Company Number: GB-TEVA-2020-GB-1211748

PATIENT
  Age: 64 Year
  Sex: Female

DRUGS (2)
  1. MORPHINE [Suspect]
     Active Substance: MORPHINE
     Dosage: 5MG TO 10MG
     Route: 048
  2. ZOMORPH [Suspect]
     Active Substance: MORPHINE SULFATE
     Dosage: 100 MG
     Route: 048

REACTIONS (2)
  - Unresponsive to stimuli [Unknown]
  - Myoclonus [Unknown]
